FAERS Safety Report 12503183 (Version 1)
Quarter: 2016Q2

REPORT INFORMATION
  Report Type: Spontaneous
  Country: US (occurrence: None)
  Receive Date: 20160627
  Receipt Date: 20160627
  Transmission Date: 20160815
  Serious: No
  Sender: FDA-Public Use
  Company Number: None

PATIENT
  Age: 39 Year
  Sex: Male

DRUGS (1)
  1. ICY HOT MEDICATED NO MESS APPLICATOR [Suspect]
     Active Substance: MENTHOL
     Indication: MYALGIA
     Dates: start: 20160621, end: 20160624

REACTIONS (4)
  - Application site pain [None]
  - Application site erythema [None]
  - Skin lesion [None]
  - Chemical injury [None]

NARRATIVE: CASE EVENT DATE: 20160624
